FAERS Safety Report 23749287 (Version 1)
Quarter: 2024Q2

REPORT INFORMATION
  Report Type: Spontaneous
  Country: US (occurrence: None)
  Receive Date: 20240416
  Receipt Date: 20240416
  Transmission Date: 20240716
  Serious: No
  Sender: FDA-Public Use
  Company Number: None

PATIENT
  Age: 85 Year
  Sex: Male
  Weight: 78 kg

DRUGS (2)
  1. ANDEXXA [Suspect]
     Active Substance: ANDEXANET ALFA
  2. ELIQUIS [Concomitant]
     Active Substance: APIXABAN
     Dates: start: 20240414

REACTIONS (3)
  - Hypotension [None]
  - Anaphylactic reaction [None]
  - Drug hypersensitivity [None]

NARRATIVE: CASE EVENT DATE: 20240415
